FAERS Safety Report 5734463-6 (Version None)
Quarter: 2008Q2

REPORT INFORMATION
  Report Type: 
  Country: None (occurrence: None)
  Receive Date: 20080512
  Receipt Date: 20080501
  Transmission Date: 20081010
  Serious: Yes (Other)
  Sender: FDA-Public Use
  Company Number: US-NOVOPROD-274892

PATIENT
  Age: 58 Year
  Sex: Female

DRUGS (2)
  1. VAGIFEM [Suspect]
     Indication: ATROPHIC VULVOVAGINITIS
     Dosage: 1 TAB DAILY
     Route: 067
     Dates: start: 20031001
  2. VAGIFEM [Suspect]
     Dosage: 1 TAB, TWICE A WEEK
     Route: 067

REACTIONS (1)
  - ENDOMETRIAL CANCER [None]
